FAERS Safety Report 9292222 (Version 1)
Quarter: 2013Q2

REPORT INFORMATION
  Report Type: Spontaneous
  Country: US (occurrence: US)
  Receive Date: 20130516
  Receipt Date: 20130516
  Transmission Date: 20140414
  Serious: No
  Sender: FDA-Public Use
  Company Number: US-009507513-1305USA007583

PATIENT
  Age: 19 Year
  Sex: Female

DRUGS (4)
  1. SAPHRIS [Suspect]
     Indication: ANXIETY
     Dosage: 5 MG, QD
     Route: 060
     Dates: start: 20130508
  2. SAPHRIS [Suspect]
     Indication: MOOD ALTERED
  3. SERTRALINE HYDROCHLORIDE [Concomitant]
  4. NALTREXONE [Concomitant]

REACTIONS (6)
  - Sedation [Recovering/Resolving]
  - Adverse event [Recovering/Resolving]
  - Feeling abnormal [Recovering/Resolving]
  - Fatigue [Recovering/Resolving]
  - Underdose [Unknown]
  - Inappropriate schedule of drug administration [Unknown]
